FAERS Safety Report 8914289 (Version 2)
Quarter: 2013Q1

REPORT INFORMATION
  Report Type: Report from Study
  Country: US (occurrence: US)
  Receive Date: 20121116
  Receipt Date: 20130319
  Transmission Date: 20140127
  Serious: Yes (Hospitalization)
  Sender: FDA-Public Use
  Company Number: US-ACTELION-A-NJ2012-72764

PATIENT
  Age: 6 Year
  Sex: Female

DRUGS (6)
  1. TRACLEER [Suspect]
     Indication: PULMONARY ARTERIAL HYPERTENSION
     Dosage: 31.25 MG, BID
     Route: 048
     Dates: start: 20120921
  2. REMODULIN [Suspect]
  3. COUMADIN [Concomitant]
     Dosage: 1 MG, UNK
  4. ZYRTEC [Concomitant]
     Dosage: UNK
     Route: 048
  5. REVATIO [Concomitant]
     Dosage: UNK
     Route: 048
  6. ALDACTONE [Concomitant]
     Dosage: 2 MG/KG, UNK

REACTIONS (17)
  - Hepatic enzyme increased [Recovered/Resolved]
  - Aspartate aminotransferase increased [Recovered/Resolved]
  - Alanine aminotransferase increased [Recovered/Resolved]
  - Staphylococcal bacteraemia [Recovered/Resolved]
  - Pyrexia [Recovered/Resolved]
  - Staphylococcus test positive [Recovered/Resolved]
  - Red blood cell sedimentation rate increased [Recovered/Resolved]
  - C-reactive protein increased [Recovered/Resolved]
  - Device related infection [Recovered/Resolved]
  - Catheter site erythema [Recovered/Resolved]
  - Catheter site inflammation [Recovered/Resolved]
  - Catheter site pruritus [Recovered/Resolved]
  - Coagulopathy [Recovered/Resolved]
  - Pancytopenia [Recovered/Resolved]
  - Nausea [Recovering/Resolving]
  - Vomiting [Recovering/Resolving]
  - Diarrhoea [Recovering/Resolving]
